FAERS Safety Report 5711114-8 (Version None)
Quarter: 2008Q2

REPORT INFORMATION
  Report Type: 
  Country: None (occurrence: None)
  Receive Date: 20080417
  Receipt Date: 20080417
  Transmission Date: 20081010
  Serious: Yes (Other)
  Sender: FDA-Public Use
  Company Number: None

PATIENT
  Sex: Male
  Weight: 79.3795 kg

DRUGS (1)
  1. SINGULAIR [Suspect]
     Indication: ASTHMA
     Dosage: 1 TABLET ONCE A DAY PO
     Route: 048
     Dates: start: 20020101, end: 20080101

REACTIONS (15)
  - ANXIETY [None]
  - CRYING [None]
  - DEPRESSION [None]
  - EDUCATIONAL PROBLEM [None]
  - EMOTIONAL DISORDER [None]
  - FEAR [None]
  - FEELING OF DESPAIR [None]
  - HEADACHE [None]
  - MOOD SWINGS [None]
  - OBSESSIVE-COMPULSIVE DISORDER [None]
  - PERFORMANCE STATUS DECREASED [None]
  - PUBERTY [None]
  - SLEEP DISORDER [None]
  - STOMACH DISCOMFORT [None]
  - TREMOR [None]
